FAERS Safety Report 13427160 (Version 2)
Quarter: 2017Q2

REPORT INFORMATION
  Report Type: Spontaneous
  Country: IT (occurrence: IT)
  Receive Date: 20170411
  Receipt Date: 20170420
  Transmission Date: 20170830
  Serious: Yes (Other)
  Sender: FDA-Public Use
  Company Number: IT-AUROBINDO-AUR-APL-2017-31957

PATIENT
  Age: 47 Year

DRUGS (1)
  1. LEVETIRACETAM FILM-COATED TABLET [Suspect]
     Active Substance: LEVETIRACETAM
     Indication: EPILEPSY
     Dosage: 1500 MG, DAILY
     Route: 048
     Dates: start: 20170213

REACTIONS (3)
  - Capillary fragility [Unknown]
  - Rash pustular [Unknown]
  - Ecchymosis [Unknown]

NARRATIVE: CASE EVENT DATE: 20170220
